FAERS Safety Report 8918655 (Version 1)
Quarter: 2012Q4

REPORT INFORMATION
  Report Type: 
  Country: US (occurrence: US)
  Receive Date: 20121120
  Receipt Date: 20121120
  Transmission Date: 20130627
  Serious: No
  Sender: FDA-Public Use
  Company Number: US-ASTRAZENECA-2012SE19943

PATIENT
  Age: 55 Year
  Sex: Female

DRUGS (2)
  1. NEXIUM [Suspect]
     Route: 048
  2. LISINOPRIL [Suspect]
     Route: 048

REACTIONS (14)
  - Tinnitus [Unknown]
  - Hiatus hernia [Unknown]
  - Gastric ulcer [Unknown]
  - Fatigue [Unknown]
  - Irritable bowel syndrome [Unknown]
  - Anxiety [Unknown]
  - Fibromyalgia [Unknown]
  - Sleep apnoea syndrome [Unknown]
  - Osteoarthritis [Unknown]
  - Intervertebral disc degeneration [Unknown]
  - Vertigo [Unknown]
  - Insomnia [Unknown]
  - Cough [Unknown]
  - Drug hypersensitivity [Unknown]
